FAERS Safety Report 8119431-1 (Version None)
Quarter: 2012Q1

REPORT INFORMATION
  Report Type: 
  Country: None (occurrence: None)
  Receive Date: 20120207
  Receipt Date: 20120131
  Transmission Date: 20120608
  Serious: Yes (Other)
  Sender: FDA-Public Use
  Company Number: BR-ABBOTT-12P-020-0900262-00

PATIENT
  Sex: Female
  Weight: 84 kg

DRUGS (4)
  1. HUMIRA [Suspect]
     Indication: RHEUMATOID ARTHRITIS
     Route: 058
     Dates: start: 20101101, end: 20111201
  2. RANITIDINE / NIMESULIDE [Concomitant]
     Indication: INFLAMMATION
     Dosage: IN THE MORNING
     Route: 048
     Dates: start: 20090101
  3. ARAVA [Concomitant]
     Indication: ARTHRITIS
     Dosage: 1 TABLET AFTER LUNCH
     Route: 048
     Dates: start: 20110801
  4. METFORMIN HCL [Concomitant]
     Indication: DIABETES MELLITUS
     Dosage: 1 TABLET MORNING, 1 TABLET EVENING
     Route: 048
     Dates: start: 20100101

REACTIONS (6)
  - DYSPNOEA [None]
  - LEFT VENTRICULAR DYSFUNCTION [None]
  - TUBERCULOSIS [None]
  - ABDOMINAL PAIN [None]
  - CATARACT [None]
  - CARDIAC FAILURE [None]
